FAERS Safety Report 14495233 (Version 2)
Quarter: 2018Q1

REPORT INFORMATION
  Report Type: Spontaneous
  Country: AR (occurrence: AR)
  Receive Date: 20180206
  Receipt Date: 20180209
  Transmission Date: 20180509
  Serious: Yes (Death, Other)
  Sender: FDA-Public Use
  Company Number: AR-ABBVIE-18P-007-2246009-00

PATIENT
  Age: 59 Year
  Sex: Female

DRUGS (2)
  1. VENCLYXTO [Suspect]
     Active Substance: VENETOCLAX
     Indication: CHRONIC LYMPHOCYTIC LEUKAEMIA
     Route: 048
  2. VENCLYXTO [Suspect]
     Active Substance: VENETOCLAX
     Route: 048

REACTIONS (3)
  - Septic shock [Fatal]
  - Platelet count decreased [Unknown]
  - Confusional state [Unknown]

NARRATIVE: CASE EVENT DATE: 20180204
